FAERS Safety Report 4607123-2 (Version None)
Quarter: 2005Q1

REPORT INFORMATION
  Report Type: 
  Country: None (occurrence: None)
  Receive Date: 20050309
  Receipt Date: 20050222
  Transmission Date: 20050727
  Serious: Yes (Other)
  Sender: FDA-Public Use
  Company Number: US_000541827

PATIENT
  Age: 69 Year
  Sex: Female

DRUGS (6)
  1. HUMULIN 70/30 [Suspect]
     Indication: DIABETES MELLITUS
     Dosage: 42 U/DAY
     Dates: start: 19910101
  2. HUMULIN R [Suspect]
     Indication: DIABETES MELLITUS
  3. HUMULIN N [Suspect]
     Indication: DIABETES MELLITUS
  4. NOVOLIN (INSULIN HUMAN INJECTION, ISOPHANE0 [Concomitant]
  5. CLARITIN [Concomitant]
  6. INSULIN NOVO (INSULIN) [Concomitant]

REACTIONS (14)
  - ASTHENIA [None]
  - BLOOD DISORDER [None]
  - CHEST PAIN [None]
  - DRUG INEFFECTIVE [None]
  - DYSPNOEA [None]
  - FEELING ABNORMAL [None]
  - HYPERGLYCAEMIA [None]
  - JOINT SWELLING [None]
  - LIVER DISORDER [None]
  - RENAL IMPAIRMENT [None]
  - RESPIRATORY DISORDER [None]
  - RESPIRATORY TRACT CONGESTION [None]
  - THROAT IRRITATION [None]
  - UNEVALUABLE EVENT [None]
